FAERS Safety Report 15244706 (Version 1)
Quarter: 2018Q3

REPORT INFORMATION
  Report Type: Spontaneous
  Country: US (occurrence: US)
  Receive Date: 20180712
  Receipt Date: 20180712
  Transmission Date: 20181010
  Serious: Yes (Death, Hospitalization)
  Sender: FDA-Public Use
  Company Number: None

PATIENT
  Age: 33 Year
  Sex: Female

DRUGS (27)
  1. PULMOZYME [Suspect]
     Active Substance: DORNASE ALFA
     Route: 055
     Dates: start: 20150216, end: 20180708
  2. ALBUTEROL. [Concomitant]
     Active Substance: ALBUTEROL
  3. FERREX [Concomitant]
     Active Substance: FERRIC POLYSACCHARIDE COMPLEX
  4. LANTUS [Concomitant]
     Active Substance: INSULIN GLARGINE
  5. VITAMIN E [Concomitant]
     Active Substance: .ALPHA.-TOCOPHEROL
  6. MULTIVITAMIN [Concomitant]
     Active Substance: VITAMINS
  7. NOVOLOG [Concomitant]
     Active Substance: INSULIN ASPART
  8. PANCRELIPASE. [Concomitant]
     Active Substance: PANCRELIPASE
  9. CALCIUM CARB [Concomitant]
     Active Substance: CALCIUM CARBONATE
  10. GABAPENTIN. [Concomitant]
     Active Substance: GABAPENTIN
  11. METOCLOPRAM [Concomitant]
     Active Substance: METOCLOPRAMIDE
  12. XOPENEX HFA [Concomitant]
     Active Substance: LEVALBUTEROL TARTRATE
  13. CAYSTON [Concomitant]
     Active Substance: AZTREONAM
  14. HYDROXYZ PAM [Concomitant]
     Active Substance: HYDROXYZINE PAMOATE
  15. SYMBICORT [Concomitant]
     Active Substance: BUDESONIDE\FORMOTEROL FUMARATE DIHYDRATE
  16. RANITIDINE. [Concomitant]
     Active Substance: RANITIDINE
  17. VANCOMYCIN [Concomitant]
     Active Substance: VANCOMYCIN
  18. AZITHROIMYCIN [Concomitant]
  19. BUPROPION. [Concomitant]
     Active Substance: BUPROPION
  20. MEPHYTON [Concomitant]
     Active Substance: PHYTONADIONE
  21. OMEPRAZOLE. [Concomitant]
     Active Substance: OMEPRAZOLE
  22. TOBI PODHALR [Concomitant]
  23. TOBRAMYCIN, 300MG/5ML [Suspect]
     Active Substance: TOBRAMYCIN
     Indication: CYSTIC FIBROSIS
     Route: 055
     Dates: start: 20140219, end: 20180708
  24. LEVOTHYROXIN [Concomitant]
     Active Substance: LEVOTHYROXINE
  25. NASONEX [Concomitant]
     Active Substance: MOMETASONE FUROATE
  26. SINGULAIR [Concomitant]
     Active Substance: MONTELUKAST SODIUM
  27. SUFAFED CONG [Concomitant]

REACTIONS (1)
  - Intestinal obstruction [None]

NARRATIVE: CASE EVENT DATE: 201806
